FAERS Safety Report 4968912-8 (Version None)
Quarter: 2006Q2

REPORT INFORMATION
  Report Type: 
  Country: None (occurrence: None)
  Receive Date: 20060405
  Receipt Date: 20060324
  Transmission Date: 20061013
  Serious: Yes (Hospitalization)
  Sender: FDA-Public Use
  Company Number: T200600116

PATIENT
  Age: 27 Year
  Sex: Female

DRUGS (1)
  1. OPTIRAY 350 [Suspect]
     Indication: UROGRAM
     Dosage: 125 ML, SINGLE, INTRAVENOUS
     Route: 042
     Dates: start: 20060323, end: 20060323

REACTIONS (5)
  - CHEST DISCOMFORT [None]
  - HYPERTENSION [None]
  - LARYNGOSPASM [None]
  - TROPONIN I INCREASED [None]
  - URTICARIA [None]
